FAERS Safety Report 5289723-2 (Version None)
Quarter: 2007Q2

REPORT INFORMATION
  Report Type: 
  Country: None (occurrence: None)
  Receive Date: 20070406
  Receipt Date: 20070327
  Transmission Date: 20071010
  Serious: Yes (Death, Hospitalization)
  Sender: FDA-Public Use
  Company Number: FI-AMGEN-UK204024

PATIENT
  Sex: Male

DRUGS (5)
  1. NEULASTA [Suspect]
     Indication: CHEMOTHERAPY
     Route: 058
     Dates: start: 20060812, end: 20061121
  2. BLEOMYCIN [Suspect]
     Route: 042
     Dates: start: 20060720, end: 20061020
  3. ADRIAMYCIN PFS [Concomitant]
     Route: 042
     Dates: start: 20060720, end: 20061020
  4. VINBLASTINE SULFATE [Concomitant]
     Route: 042
     Dates: start: 20060720, end: 20061020
  5. DACARBAZINE [Concomitant]
     Route: 042
     Dates: start: 20060720, end: 20061020

REACTIONS (3)
  - ACUTE RESPIRATORY DISTRESS SYNDROME [None]
  - DRUG INTERACTION [None]
  - PNEUMONITIS [None]
